FAERS Safety Report 6376344-3 (Version None)
Quarter: 2009Q3

REPORT INFORMATION
  Report Type: 
  Country: None (occurrence: None)
  Receive Date: 20090922
  Receipt Date: 20090922
  Transmission Date: 20100115
  Serious: Yes (Other)
  Sender: FDA-Public Use
  Company Number: None

PATIENT
  Age: 19 Year
  Sex: Female
  Weight: 45.3597 kg

DRUGS (5)
  1. YAZ [Suspect]
     Indication: CONTRACEPTION
     Dosage: 28 DAY CYCLE PO
     Route: 048
     Dates: start: 20071205, end: 20090820
  2. YAZ [Suspect]
     Indication: MENSTRUAL DISORDER
     Dosage: 28 DAY CYCLE PO
     Route: 048
     Dates: start: 20071205, end: 20090820
  3. CLOBETAL PROPIANATE [Concomitant]
  4. DOVONEX [Concomitant]
  5. HYDROCORTIZONE VALLERATE [Concomitant]

REACTIONS (4)
  - DRUG DOSE OMISSION [None]
  - GUTTATE PSORIASIS [None]
  - LIVER DISORDER [None]
  - PHARYNGITIS STREPTOCOCCAL [None]
